FAERS Safety Report 11166317 (Version 1)
Quarter: 2015Q2

REPORT INFORMATION
  Report Type: Spontaneous
  Country: GB (occurrence: GB)
  Receive Date: 20150605
  Receipt Date: 20150605
  Transmission Date: 20150821
  Serious: Yes (Other)
  Sender: FDA-Public Use
  Company Number: GB-ACCORD-031239

PATIENT
  Age: 83 Year

DRUGS (7)
  1. DONEPEZIL/DONEPEZIL HYDROCHLORIDE [Concomitant]
     Route: 041
  2. MACROGOL/MACROGOL STEARATE [Concomitant]
     Route: 030
  3. LEVETIRACETAM. [Suspect]
     Active Substance: LEVETIRACETAM
     Indication: PARTIAL SEIZURES
     Dosage: AT NIGHT. ONLY HAD 2 DOSES IN TOTAL.
     Route: 048
     Dates: start: 20150113, end: 20150116
  4. DALTEPARIN [Concomitant]
     Active Substance: DALTEPARIN
     Route: 058
  5. CHLORPHENAMINE/CHLORPHENAMINE MALEATE/CHLORPHENAMINE RESINATE/CHLORPHENAMINE TANNATE [Concomitant]
     Dosage: AT NIGHT
     Route: 048
  6. LEVOTHYROXINE [Concomitant]
     Active Substance: LEVOTHYROXINE
     Route: 048
  7. OMEPRAZOLE. [Concomitant]
     Active Substance: OMEPRAZOLE
     Route: 048

REACTIONS (1)
  - Dysphagia [Recovering/Resolving]

NARRATIVE: CASE EVENT DATE: 20150116
